FAERS Safety Report 4657669-6 (Version None)
Quarter: 2005Q2

REPORT INFORMATION
  Report Type: 
  Country: None (occurrence: None)
  Receive Date: 20050510
  Receipt Date: 20050404
  Transmission Date: 20051028
  Serious: Yes (Life-Threatening)
  Sender: FDA-Public Use
  Company Number: JP-BRISTOL-MYERS SQUIBB COMPANY-12924676

PATIENT
  Age: 71 Year
  Sex: Female

DRUGS (8)
  1. ENDOXAN [Suspect]
     Indication: ACUTE LYMPHOCYTIC LEUKAEMIA
     Route: 041
     Dates: start: 20050131, end: 20050131
  2. ONCOVIN [Suspect]
     Indication: ACUTE LYMPHOCYTIC LEUKAEMIA
     Route: 041
     Dates: start: 20050131, end: 20050131
  3. FILGRASTIM [Suspect]
     Indication: NEUTROPENIA
     Dosage: DOSE UNIT:  UG
     Route: 058
     Dates: start: 20050204, end: 20050223
  4. DAUNORUBICIN HCL [Suspect]
     Indication: ACUTE LYMPHOCYTIC LEUKAEMIA
     Route: 041
     Dates: start: 20050131, end: 20050202
  5. LEUNASE [Suspect]
     Indication: ACUTE LYMPHOCYTIC LEUKAEMIA
     Route: 041
     Dates: start: 20050208, end: 20050219
  6. GASTER [Concomitant]
     Dates: start: 20050131, end: 20050213
  7. FIRSTCIN [Concomitant]
     Dates: start: 20050131, end: 20050213
  8. ISEPAMICIN [Concomitant]
     Dates: start: 20050113, end: 20050213

REACTIONS (2)
  - CHOLESTASIS [None]
  - LIVER DISORDER [None]
